FAERS Safety Report 16206983 (Version 5)
Quarter: 2019Q3

REPORT INFORMATION
  Report Type: Report from Study
  Country: US (occurrence: US)
  Receive Date: 20190417
  Receipt Date: 20190715
  Transmission Date: 20191004
  Serious: Yes (Hospitalization, Other)
  Sender: FDA-Public Use
  Company Number: US-GILEAD-2019-0402642

PATIENT
  Age: 38 Year
  Sex: Female

DRUGS (4)
  1. AMBRISENTAN [Suspect]
     Active Substance: AMBRISENTAN
     Indication: PULMONARY ARTERIAL HYPERTENSION
     Dosage: 10 MG, QD
     Route: 048
     Dates: start: 20180312
  2. REMODULIN [Concomitant]
     Active Substance: TREPROSTINIL
     Dosage: UNK
     Dates: end: 201812
  3. TYVASO [Concomitant]
     Active Substance: TREPROSTINIL
     Indication: PULMONARY ARTERIAL HYPERTENSION
     Dosage: 60 UG, QID
     Dates: start: 20190102
  4. ORENITRAM [Concomitant]
     Active Substance: TREPROSTINIL

REACTIONS (11)
  - Decreased appetite [Not Recovered/Not Resolved]
  - Cardiac failure [Recovered/Resolved]
  - Hepatic failure [Recovered/Resolved]
  - Chest pain [Unknown]
  - Unresponsive to stimuli [Unknown]
  - Headache [Not Recovered/Not Resolved]
  - Haemoptysis [Unknown]
  - Diarrhoea [Not Recovered/Not Resolved]
  - Nasopharyngitis [Not Recovered/Not Resolved]
  - Treatment noncompliance [Unknown]
  - Renal failure [Recovered/Resolved]

NARRATIVE: CASE EVENT DATE: 20190317
